FAERS Safety Report 5847509-1 (Version None)
Quarter: 2008Q3

REPORT INFORMATION
  Report Type: 
  Country: None (occurrence: None)
  Receive Date: 20080814
  Receipt Date: 20080805
  Transmission Date: 20090109
  Serious: Yes (Hospitalization)
  Sender: FDA-Public Use
  Company Number: 2008BI019878

PATIENT
  Age: 69 Year
  Sex: Female
  Weight: 56.6996 kg

DRUGS (3)
  1. AVONEX [Suspect]
     Indication: MULTIPLE SCLEROSIS
     Dosage: 30 UG; QM; IM, 30 UG; QM; IM
     Route: 030
     Dates: start: 20001206
  2. DEPAKOTE [Concomitant]
  3. ASACOL [Concomitant]

REACTIONS (2)
  - FALL [None]
  - PELVIC FRACTURE [None]
